FAERS Safety Report 7738073-0 (Version None)
Quarter: 2011Q3

REPORT INFORMATION
  Report Type: 
  Country: None (occurrence: None)
  Receive Date: 20110906
  Receipt Date: 20110824
  Transmission Date: 20111222
  Serious: Yes (Life-Threatening, Hospitalization)
  Sender: FDA-Public Use
  Company Number: GB-ACCORD-010426

PATIENT
  Age: 65 Year
  Sex: Male

DRUGS (8)
  1. NORTRIPTYLINE HCL [Concomitant]
  2. TOPIRAMATE [Suspect]
     Indication: HEADACHE
     Dosage: 50.00-MG-2.00 TIMES PER-1.0DAYS /ORAL
     Route: 048
     Dates: start: 20100701, end: 20100709
  3. RIZATRIPTAN(RIZATRIPTAN) [Concomitant]
  4. ERYTHROMYCIN [Suspect]
     Indication: OROPHARYNGEAL PAIN
     Dosage: 500.00-MG-4.00 TIMES PER-1.0DAYS /ORAL
     Route: 048
     Dates: start: 20110704, end: 20110708
  5. OMEPRAZOLE [Concomitant]
  6. ACETAMINOPHEN [Concomitant]
  7. TRAMADOL HYDROCHLORIDE [Concomitant]
  8. ALBUTEROL SULFATE [Concomitant]

REACTIONS (4)
  - DYSPHONIA [None]
  - DYSPNOEA [None]
  - DYSPHAGIA [None]
  - MYASTHENIA GRAVIS CRISIS [None]
